FAERS Safety Report 6225753-1 (Version None)
Quarter: 2009Q2

REPORT INFORMATION
  Report Type: 
  Country: None (occurrence: None)
  Receive Date: 20090612
  Receipt Date: 20090423
  Transmission Date: 20091009
  Serious: No
  Sender: FDA-Public Use
  Company Number: US-ABBOTT-09P-163-0569679-00

PATIENT
  Sex: Female
  Weight: 50.394 kg

DRUGS (1)
  1. HUMIRA [Suspect]
     Indication: CROHN'S DISEASE
     Route: 058
     Dates: start: 20081124

REACTIONS (7)
  - ABDOMINAL DISTENSION [None]
  - HEADACHE [None]
  - LIBIDO DECREASED [None]
  - MALAISE [None]
  - MENSTRUATION IRREGULAR [None]
  - OROPHARYNGEAL PAIN [None]
  - PYREXIA [None]
